FAERS Safety Report 10270053 (Version 1)
Quarter: 2014Q3

REPORT INFORMATION
  Report Type: Report from Study
  Country: US (occurrence: US)
  Receive Date: 20140701
  Receipt Date: 20140701
  Transmission Date: 20150326
  Serious: No
  Sender: FDA-Public Use
  Company Number: US-ABBVIE-14P-163-1216798-00

PATIENT
  Sex: Female

DRUGS (4)
  1. TRUVADA [Suspect]
     Active Substance: EMTRICITABINE\TENOFOVIR DISOPROXIL FUMARATE
     Indication: ANTIRETROVIRAL THERAPY
     Dosage: 1 TABLET/CAPSULE TAKING AT CONCEPTION
     Route: 048
     Dates: end: 20130815
  2. REYATAZ [Suspect]
     Active Substance: ATAZANAVIR SULFATE
     Indication: ANTIRETROVIRAL THERAPY
     Dosage: TAKING AT CONCEPTION
     Route: 048
     Dates: end: 20130815
  3. RITONAVIR [Suspect]
     Active Substance: RITONAVIR
     Indication: ANTIRETROVIRAL THERAPY
     Dosage: TAKING AT CONCEPATION
     Route: 048
     Dates: end: 20130815
  4. STRIBILD [Suspect]
     Active Substance: COBICISTAT\ELVITEGRAVIR\EMTRICITABINE\TENOFOVIR DISOPROXIL FUMARATE
     Indication: ANTIRETROVIRAL THERAPY
     Dosage: 1 TABLET/CAPSULE NOT TAKING AT CONCEPTION
     Route: 048
     Dates: end: 20130816

REACTIONS (1)
  - Hepatic function abnormal [Unknown]
